FAERS Safety Report 9275609 (Version 1)
Quarter: 2013Q2

REPORT INFORMATION
  Report Type: Spontaneous
  Country: US (occurrence: None)
  Receive Date: 20130502
  Receipt Date: 20130502
  Transmission Date: 20140414
  Serious: Yes (Hospitalization)
  Sender: FDA-Public Use
  Company Number: None

PATIENT
  Age: 34 Year
  Sex: Male

DRUGS (2)
  1. ITRACONAZOLE [Suspect]
  2. LAMIVUDINE [Suspect]

REACTIONS (2)
  - Anaemia [None]
  - Drug interaction [None]
